FAERS Safety Report 6569882-1 (Version None)
Quarter: 2010Q1

REPORT INFORMATION
  Report Type: 
  Country: None (occurrence: None)
  Receive Date: 20100204
  Receipt Date: 20100122
  Transmission Date: 20100710
  Serious: Yes (Other)
  Sender: FDA-Public Use
  Company Number: PHEH2010US01352

PATIENT
  Sex: Female

DRUGS (3)
  1. METOPIRONE [Suspect]
     Indication: ECTOPIC ACTH SYNDROME
     Dosage: 250 MG, TID
  2. METOPIRONE [Suspect]
     Indication: CUSHING'S SYNDROME
     Dosage: 500 MG, TID
  3. PERCOCET [Concomitant]

REACTIONS (2)
  - ALANINE AMINOTRANSFERASE INCREASED [None]
  - ASPARTATE AMINOTRANSFERASE INCREASED [None]
